FAERS Safety Report 26128843 (Version 1)
Quarter: 2025Q4

REPORT INFORMATION
  Report Type: Spontaneous
  Country: CN (occurrence: CN)
  Receive Date: 20251208
  Receipt Date: 20251208
  Transmission Date: 20260117
  Serious: Yes (Hospitalization)
  Sender: BEIGENE
  Company Number: CN-BEONEMEDICINES-BGN-2025-021295

PATIENT
  Age: 57 Year
  Sex: Male
  Weight: 58 kg

DRUGS (6)
  1. TISLELIZUMAB [Suspect]
     Active Substance: TISLELIZUMAB
     Indication: Lung neoplasm malignant
     Dosage: 0.2 GRAM, Q3WK
     Dates: start: 20251012
  2. TISLELIZUMAB [Suspect]
     Active Substance: TISLELIZUMAB
     Dosage: 0.2 GRAM, Q3WK
     Route: 041
     Dates: start: 20251012
  3. TISLELIZUMAB [Suspect]
     Active Substance: TISLELIZUMAB
     Dosage: 0.2 GRAM, Q3WK
     Route: 041
     Dates: start: 20251012
  4. TISLELIZUMAB [Suspect]
     Active Substance: TISLELIZUMAB
     Dosage: 0.2 GRAM, Q3WK
     Dates: start: 20251012
  5. DOCETAXEL [Concomitant]
     Active Substance: DOCETAXEL
     Indication: Lung neoplasm malignant
     Dosage: 120 MILLIGRAM, Q3WK
     Route: 041
     Dates: start: 20251012
  6. DOCETAXEL [Concomitant]
     Active Substance: DOCETAXEL
     Dosage: 120 MILLIGRAM, Q3WK
     Dates: start: 20251012

REACTIONS (1)
  - Interstitial lung disease [Recovering/Resolving]

NARRATIVE: CASE EVENT DATE: 20251017
